FAERS Safety Report 5349953-8 (Version None)
Quarter: 2007Q2

REPORT INFORMATION
  Report Type: 
  Country: None (occurrence: None)
  Receive Date: 20070607
  Receipt Date: 20070524
  Transmission Date: 20071010
  Serious: Yes (Other)
  Sender: FDA-Public Use
  Company Number: US-SHR-US-2006-035605

PATIENT
  Age: 55 Year
  Sex: Female
  Weight: 95.238 kg

DRUGS (5)
  1. BETASERON [Suspect]
     Indication: RELAPSING-REMITTING MULTIPLE SCLEROSIS
     Dosage: 8 MIU, EVERY 2D
     Route: 058
     Dates: start: 20060920, end: 20061001
  2. ASPIRIN [Concomitant]
     Indication: PAIN
  3. IMIPRAMINE [Concomitant]
     Dosage: 50 MG, BED T.
  4. OXYBUTYNIN CHLORIDE [Concomitant]
     Dosage: 5 UNK, 3X/DAY
  5. DIOVAN [Concomitant]
     Dosage: 160 MG, UNK

REACTIONS (7)
  - HEPATIC ENZYME INCREASED [None]
  - HEPATOMEGALY [None]
  - INJECTION SITE BRUISING [None]
  - INJECTION SITE ERYTHEMA [None]
  - INJECTION SITE MASS [None]
  - INJECTION SITE PAIN [None]
  - PULMONARY CONGESTION [None]
